FAERS Safety Report 8817993 (Version 2)
Quarter: 2013Q2

REPORT INFORMATION
  Report Type: Spontaneous
  Country: US (occurrence: US)
  Receive Date: 20121001
  Receipt Date: 20130521
  Transmission Date: 20140414
  Serious: Yes (Hospitalization)
  Sender: FDA-Public Use
  Company Number: US-GILEAD-2012-0061968

PATIENT
  Age: 74 Year
  Sex: Female

DRUGS (3)
  1. LETAIRIS [Suspect]
     Indication: PULMONARY ARTERIAL HYPERTENSION
     Dosage: 5 MG, QD
     Route: 048
     Dates: start: 20120330
  2. LETAIRIS [Suspect]
     Indication: CORONARY ARTERY DISEASE
  3. LETAIRIS [Suspect]
     Indication: CARDIAC VALVE DISEASE

REACTIONS (2)
  - Respiratory disorder [Unknown]
  - Dyspnoea [Unknown]
